FAERS Safety Report 7933938-9 (Version None)
Quarter: 2011Q4

REPORT INFORMATION
  Report Type: 
  Country: None (occurrence: None)
  Receive Date: 20111122
  Receipt Date: 20111115
  Transmission Date: 20120403
  Serious: Yes (Death, Hospitalization)
  Sender: FDA-Public Use
  Company Number: GB-JNJFOC-20110908132

PATIENT
  Age: 79 Year
  Sex: Female

DRUGS (12)
  1. DIPYRIDAMOLE [Concomitant]
  2. ALENDRONIC ACID [Concomitant]
  3. SIMVADOR [Concomitant]
  4. LANSOPRAZOLE [Concomitant]
  5. PREDNISONE TAB [Concomitant]
  6. MELOXICAM [Concomitant]
  7. FOLIC ACID [Concomitant]
  8. INFLIXIMAB, RECOMBINANT [Suspect]
     Indication: RHEUMATOID ARTHRITIS
     Route: 042
     Dates: start: 20070220, end: 20070831
  9. GABAPENTIN [Concomitant]
  10. LEVOTHYROXINE SODIUM [Concomitant]
  11. GABAPENTIN [Concomitant]
  12. ASPIRIN [Concomitant]

REACTIONS (5)
  - CEREBROVASCULAR ACCIDENT [None]
  - ARTHRITIS [None]
  - OSTEOPOROSIS [None]
  - RENAL FAILURE CHRONIC [None]
  - BRONCHOPNEUMONIA [None]
